FAERS Safety Report 7586922-1 (Version None)
Quarter: 2011Q3

REPORT INFORMATION
  Report Type: 
  Country: None (occurrence: None)
  Receive Date: 20110701
  Receipt Date: 20110629
  Transmission Date: 20111222
  Serious: Yes (Hospitalization, Other)
  Sender: FDA-Public Use
  Company Number: AU-CEPHALON-2011003384

PATIENT
  Sex: Male
  Weight: 72 kg

DRUGS (6)
  1. BENDAMUSTINE HCL [Suspect]
     Indication: NON-HODGKIN'S LYMPHOMA
     Route: 042
     Dates: start: 20101206
  2. IRBESARTAN + HYDROCHLOROTHIAZIDE [Concomitant]
     Dates: start: 19900101, end: 20110612
  3. RITUXIMAB [Suspect]
     Indication: NON-HODGKIN'S LYMPHOMA
     Route: 042
     Dates: start: 20101206
  4. ALLOPURINOL [Concomitant]
     Dates: start: 19800101, end: 20110612
  5. MAXOLON [Concomitant]
     Dates: start: 20100101, end: 20110612
  6. ACETAMINOPHEN [Concomitant]
     Dates: start: 20100101

REACTIONS (1)
  - HYPOXIA [None]
